FAERS Safety Report 9014333 (Version 1)
Quarter: 2013Q1

REPORT INFORMATION
  Report Type: Spontaneous
  Country: US (occurrence: US)
  Receive Date: 20130115
  Receipt Date: 20130115
  Transmission Date: 20140127
  Serious: Yes (Hospitalization, Other)
  Sender: FDA-Public Use
  Company Number: US-009507513-1301USA002451

PATIENT
  Age: 85 Year
  Sex: Male

DRUGS (6)
  1. SINGULAIR [Suspect]
     Indication: ILL-DEFINED DISORDER
     Dosage: 10 MG, UNK
     Route: 048
  2. SIMVASTATIN [Suspect]
     Indication: CARDIAC FAILURE
     Dosage: 40 MG, UNK
     Route: 048
  3. CARDENSIEL [Suspect]
     Indication: CHRONIC OBSTRUCTIVE PULMONARY DISEASE
  4. OGASTORO [Suspect]
     Dosage: 30 MG, UNK
     Route: 048
  5. PLAVIX [Concomitant]
     Route: 048
  6. CETIRIZINE HYDROCHLORIDE [Concomitant]

REACTIONS (5)
  - Renal failure acute [Unknown]
  - Lung disorder [Unknown]
  - Hypotension [Unknown]
  - Hyponatraemia [Unknown]
  - Drug interaction [Unknown]
